FAERS Safety Report 15121295 (Version 3)
Quarter: 2018Q4

REPORT INFORMATION
  Report Type: Spontaneous
  Country: FR (occurrence: FR)
  Receive Date: 20180709
  Receipt Date: 20180901
  Transmission Date: 20190204
  Serious: Yes (Death, Life-Threatening, Hospitalization, Disabling, Other)
  Sender: FDA-Public Use
  Company Number: FR-AUROBINDO-AUR-APL-2018-034750

PATIENT
  Age: 64 Year
  Sex: Male
  Weight: 80.6 kg

DRUGS (11)
  1. SUNITINIB [Suspect]
     Active Substance: SUNITINIB
     Indication: PRODUCT USED FOR UNKNOWN INDICATION
     Dosage: UNK ()
     Route: 065
     Dates: start: 20170822, end: 20180219
  2. OXALIPLATIN. [Suspect]
     Active Substance: OXALIPLATIN
     Dosage: UNK ()
     Route: 065
     Dates: start: 20170502, end: 20170814
  3. FLUOROURACIL. [Suspect]
     Active Substance: FLUOROURACIL
     Dosage: UNK ()
     Route: 065
     Dates: start: 20170502, end: 20170725
  4. AFINITOR [Suspect]
     Active Substance: EVEROLIMUS
     Dosage: 10 MG, QD
     Route: 065
     Dates: start: 20180226, end: 20180304
  5. SUNITINIB [Suspect]
     Active Substance: SUNITINIB
     Dosage: UNK ()
     Route: 065
     Dates: start: 20170822, end: 20180220
  6. DACARBAZINE. [Suspect]
     Active Substance: DACARBAZINE
     Indication: PRODUCT USED FOR UNKNOWN INDICATION
     Dosage: UNK
     Route: 065
     Dates: start: 20141023, end: 20170411
  7. DACARBAZINE. [Suspect]
     Active Substance: DACARBAZINE
     Dosage: UNK ()
     Route: 065
     Dates: start: 20141023, end: 20170420
  8. FLUOROURACIL. [Suspect]
     Active Substance: FLUOROURACIL
     Indication: PRODUCT USED FOR UNKNOWN INDICATION
     Dosage: UNK ()
     Route: 065
     Dates: start: 20141023, end: 20170411
  9. OXALIPLATIN. [Suspect]
     Active Substance: OXALIPLATIN
     Indication: PRODUCT USED FOR UNKNOWN INDICATION
     Dosage: UNK
     Route: 065
     Dates: start: 20170502, end: 20170725
  10. FLUOROURACIL. [Suspect]
     Active Substance: FLUOROURACIL
     Dosage: UNK ()
     Route: 065
     Dates: start: 20141023, end: 20170420
  11. AFINITOR [Suspect]
     Active Substance: EVEROLIMUS
     Indication: PANCREATIC NEUROENDOCRINE TUMOUR METASTATIC
     Dosage: 10 MG, QD
     Route: 065
     Dates: start: 20180226, end: 20180323

REACTIONS (13)
  - Chest pain [Unknown]
  - Cholestasis [Not Recovered/Not Resolved]
  - Hyperkalaemia [Not Recovered/Not Resolved]
  - Pyrexia [Unknown]
  - Acute kidney injury [Not Recovered/Not Resolved]
  - General physical health deterioration [Not Recovered/Not Resolved]
  - Oedema peripheral [Not Recovered/Not Resolved]
  - Hyperleukocytosis [Unknown]
  - Pancreatic neuroendocrine tumour metastatic [Fatal]
  - Abdominal pain [Unknown]
  - Malignant neoplasm progression [Fatal]
  - Jaundice cholestatic [Not Recovered/Not Resolved]
  - Pleural effusion [Unknown]

NARRATIVE: CASE EVENT DATE: 20180504
